FAERS Safety Report 9247678 (Version 2)
Quarter: 2013Q2

REPORT INFORMATION
  Report Type: Spontaneous
  Country: CN (occurrence: CN)
  Receive Date: 20130423
  Receipt Date: 20130426
  Transmission Date: 20140414
  Serious: Yes (Other)
  Sender: FDA-Public Use
  Company Number: CN-PFIZER INC-2013122825

PATIENT
  Age: 22 Year
  Sex: Male

DRUGS (2)
  1. VFEND [Suspect]
     Indication: FUNGAL INFECTION
     Dosage: 400 MG, ONCE PER 12 HOURS
     Route: 041
     Dates: start: 201303, end: 201303
  2. VFEND [Suspect]
     Dosage: 200 MG, ONCE PER 12 HOURS
     Route: 041
     Dates: start: 201303, end: 201303

REACTIONS (3)
  - Persecutory delusion [Recovered/Resolved]
  - Hallucination, visual [Recovered/Resolved]
  - Vision blurred [Recovered/Resolved]
